FAERS Safety Report 20854974 (Version 1)
Quarter: 2022Q2

REPORT INFORMATION
  Report Type: Spontaneous
  Country: US (occurrence: None)
  Receive Date: 20220520
  Receipt Date: 20220520
  Transmission Date: 20220721
  Serious: Yes (Hospitalization)
  Sender: FDA-Public Use
  Company Number: US-ROCHE-3100191

PATIENT
  Sex: Female

DRUGS (2)
  1. XOLAIR [Suspect]
     Active Substance: OMALIZUMAB
     Indication: Urticaria
     Dosage: INJECT 300 MG UNDER THE SKIN (SUBCUTANEOUS INJECTION) EVERY 28 DAYS, ONGOING:YES
     Route: 058
     Dates: start: 20210521
  2. HUMIRA [Concomitant]
     Active Substance: ADALIMUMAB
     Dosage: HUMIRA CF PEN, HUMIRA PEN (INJ 40/0.4ML), HUMIRA PEN KIT CD/UC/HS

REACTIONS (1)
  - Infected neoplasm [Unknown]
